FAERS Safety Report 18616863 (Version 2)
Quarter: 2021Q4

REPORT INFORMATION
  Report Type: Spontaneous
  Country: KR (occurrence: KR)
  Receive Date: 20201215
  Receipt Date: 20211201
  Transmission Date: 20220303
  Serious: Yes (Hospitalization, Other)
  Sender: FDA-Public Use
  Company Number: KR-CPL-002056

PATIENT
  Age: 71 Year
  Sex: Male
  Weight: 55 kg

DRUGS (6)
  1. DONEPEZIL HYDROCHLORIDE [Interacting]
     Active Substance: DONEPEZIL HYDROCHLORIDE
     Indication: Dementia
  2. ROCURONIUM [Interacting]
     Active Substance: ROCURONIUM BROMIDE
     Indication: Anaesthesia
     Dosage: BOLUS INJECTION 50 MG (0.9 MG/KG)
  3. PROPOFOL [Concomitant]
     Active Substance: PROPOFOL
     Indication: General anaesthesia
     Dosage: 2% PROPOFOL, TARGET-CONTROLLED INFUSION
  4. REMIFENTANIL [Concomitant]
     Active Substance: REMIFENTANIL
     Indication: General anaesthesia
     Dosage: TARGET-CONTROLLED INFUSION
  5. QUETIAPINE [Concomitant]
     Active Substance: QUETIAPINE
  6. PREGABALIN [Concomitant]
     Active Substance: PREGABALIN

REACTIONS (4)
  - Neuromuscular blockade [Recovered/Resolved]
  - Drug interaction [Unknown]
  - Therapeutic response shortened [Unknown]
  - Drug resistance [Unknown]
